FAERS Safety Report 24647121 (Version 1)
Quarter: 2024Q4

REPORT INFORMATION
  Report Type: Spontaneous
  Country: US (occurrence: US)
  Receive Date: 20241121
  Receipt Date: 20241121
  Transmission Date: 20250115
  Serious: Yes (Congenital Anomaly, Other)
  Sender: CIPLA
  Company Number: US-CIPLA LTD.-2024US13222

PATIENT

DRUGS (8)
  1. ZIDOVUDINE [Suspect]
     Active Substance: ZIDOVUDINE
     Dosage: UNK
     Route: 064
  2. PREZISTA [Suspect]
     Active Substance: DARUNAVIR ETHANOLATE
     Dosage: UNK
     Route: 064
  3. INTELENCE [Suspect]
     Active Substance: ETRAVIRINE
     Dosage: UNK
     Route: 064
  4. ISENTRESS [Suspect]
     Active Substance: RALTEGRAVIR POTASSIUM
     Dosage: UNK
     Route: 064
  5. NORVIR [Suspect]
     Active Substance: RITONAVIR
     Dosage: UNK (2 REGIMENS)
     Route: 064
  6. TRUVADA [Suspect]
     Active Substance: EMTRICITABINE\TENOFOVIR DISOPROXIL FUMARATE
     Dosage: UNK
     Route: 064
  7. APTIVUS [Suspect]
     Active Substance: TIPRANAVIR
     Dosage: UNK
     Route: 064
  8. INSULIN ASPART [Suspect]
     Active Substance: INSULIN ASPART
     Dosage: UNK
     Route: 064

REACTIONS (16)
  - Cloacal exstrophy [Unknown]
  - Genitalia external ambiguous [Unknown]
  - Caudal regression syndrome [Unknown]
  - Exomphalos [Unknown]
  - Lipodystrophy acquired [Unknown]
  - Meningomyelocele [Unknown]
  - Tethered cord syndrome [Unknown]
  - Umbilical cord abnormality [Unknown]
  - Sepsis [Unknown]
  - Bladder agenesis [Unknown]
  - Meconium stain [Unknown]
  - Blood iron decreased [Unknown]
  - Erythema [Unknown]
  - Congenital musculoskeletal disorder [Unknown]
  - Gastrointestinal disorder congenital [Unknown]
  - Foetal exposure during pregnancy [Unknown]
